FAERS Safety Report 6719369-8 (Version None)
Quarter: 2010Q2

REPORT INFORMATION
  Report Type: 
  Country: None (occurrence: None)
  Receive Date: 20100511
  Receipt Date: 20100430
  Transmission Date: 20101027
  Serious: Yes (Death)
  Sender: FDA-Public Use
  Company Number: AU-B.I. PHARMACEUTICALS,INC./RIDGEFIELD-2010-DE-02437GD

PATIENT
  Age: 45 Year
  Sex: Male

DRUGS (1)
  1. NEVIRAPINE [Suspect]

REACTIONS (1)
  - NARCOTIC INTOXICATION [None]
